FAERS Safety Report 11495232 (Version 3)
Quarter: 2015Q4

REPORT INFORMATION
  Report Type: Spontaneous
  Country: LT (occurrence: LT)
  Receive Date: 20150911
  Receipt Date: 20151001
  Transmission Date: 20160304
  Serious: Yes (Other)
  Sender: FDA-Public Use
  Company Number: LT-SA-2015SA135690

PATIENT
  Sex: Male

DRUGS (6)
  1. FABRAZYME [Suspect]
     Active Substance: AGALSIDASE BETA
     Indication: FABRY^S DISEASE
     Route: 041
     Dates: start: 20131121
  2. CALCIUM ACETATE/MAGNESIUM CARBONATE [Concomitant]
     Route: 048
  3. FABRAZYME [Suspect]
     Active Substance: AGALSIDASE BETA
     Indication: FABRY^S DISEASE
  4. METOPROLOL [Concomitant]
     Active Substance: METOPROLOL
     Route: 048
  5. FABRAZYME [Suspect]
     Active Substance: AGALSIDASE BETA
     Indication: FABRY^S DISEASE
     Dosage: FREQUENCY WAS REDUCED  DUE TO INFLAMMATORY BLOOD CHANGES
     Route: 041
  6. LORAZEPAM. [Concomitant]
     Active Substance: LORAZEPAM
     Route: 048

REACTIONS (5)
  - C-reactive protein increased [Unknown]
  - Tonsillitis [Unknown]
  - Chronic kidney disease [Unknown]
  - Bronchitis [Unknown]
  - Inflammation [Not Recovered/Not Resolved]

NARRATIVE: CASE EVENT DATE: 2015
